FAERS Safety Report 5275578-9 (Version None)
Quarter: 2007Q1

REPORT INFORMATION
  Report Type: 
  Country: None (occurrence: None)
  Receive Date: 20061213
  Receipt Date: 20060426
  Transmission Date: 20070707
  Serious: No
  Sender: FDA-Public Use
  Company Number: 2006UW07518

PATIENT
  Age: 44 Year
  Sex: Female
  Weight: 48.987 kg

DRUGS (1)
  1. SEROQUEL [Suspect]
     Indication: SOMNOLENCE
     Dosage: 25 MG HS PO
     Route: 048
     Dates: start: 20000101

REACTIONS (4)
  - BREAST MASS [None]
  - INTESTINAL FUNCTIONAL DISORDER [None]
  - PANCREATITIS [None]
  - WEIGHT DECREASED [None]
